FAERS Safety Report 8358716 (Version 4)
Quarter: 2013Q1

REPORT INFORMATION
  Report Type: Report from Study
  Country: BR (occurrence: BR)
  Receive Date: 20120127
  Receipt Date: 20130320
  Transmission Date: 20140127
  Serious: Yes (Hospitalization, Other)
  Sender: FDA-Public Use
  Company Number: BR-ROCHE-1032232

PATIENT
  Age: 72 Year
  Sex: Female
  Weight: 64 kg

DRUGS (2)
  1. TOCILIZUMAB [Suspect]
     Indication: RHEUMATOID ARTHRITIS
     Route: 042
     Dates: start: 20110812, end: 201302
  2. MAREVAN [Concomitant]
     Indication: THROMBOSIS

REACTIONS (8)
  - Spinal column injury [Not Recovered/Not Resolved]
  - Fall [Recovered/Resolved]
  - Pain in extremity [Recovering/Resolving]
  - Joint injury [Recovered/Resolved]
  - Alopecia [Recovered/Resolved]
  - Pain [Recovering/Resolving]
  - Arthropathy [Unknown]
  - Thrombosis [Recovered/Resolved]
